FAERS Safety Report 23099889 (Version 1)
Quarter: 2023Q4

REPORT INFORMATION
  Report Type: Spontaneous
  Country: US (occurrence: US)
  Receive Date: 20231024
  Receipt Date: 20231024
  Transmission Date: 20240109
  Serious: Yes (Other)
  Sender: FDA-Public Use
  Company Number: US-PFIZER INC-PV202300171486

PATIENT
  Age: 55 Year
  Sex: Male

DRUGS (1)
  1. MILRINONE [Suspect]
     Active Substance: MILRINONE
     Dosage: UNK

REACTIONS (2)
  - Myocardial ischaemia [Unknown]
  - Condition aggravated [Unknown]
